FAERS Safety Report 18055054 (Version 1)
Quarter: 2020Q3

REPORT INFORMATION
  Report Type: Report from Study
  Country: BE (occurrence: BE)
  Receive Date: 20200722
  Receipt Date: 20200722
  Transmission Date: 20201103
  Serious: Yes (Hospitalization, Other)
  Sender: FDA-Public Use
  Company Number: BE-ASTELLAS-2017US000388

PATIENT
  Age: 66 Year
  Sex: Male

DRUGS (6)
  1. PANTOMED                           /00178901/ [Concomitant]
     Active Substance: DEXPANTHENOL
     Indication: PROPHYLAXIS AGAINST GASTROINTESTINAL ULCER
     Route: 048
     Dates: start: 201601
  2. ALLOPURINOL. [Concomitant]
     Active Substance: ALLOPURINOL
     Indication: PROPHYLAXIS
     Route: 048
     Dates: start: 2006
  3. ASP2215 [Suspect]
     Active Substance: GILTERITINIB
     Route: 048
     Dates: start: 20170116
  4. ZINNAT                             /00454601/ [Concomitant]
     Active Substance: CEFUROXIME
     Indication: INFECTION PROPHYLAXIS
     Route: 048
     Dates: start: 20161228, end: 20170102
  5. CO?LISINOPRIL [Concomitant]
     Active Substance: HYDROCHLOROTHIAZIDE\LISINOPRIL
     Indication: HYPERTENSION
     Dosage: 20/12.5 MG, ONCE DAILY
     Route: 048
     Dates: start: 2011
  6. ASP2215 [Suspect]
     Active Substance: GILTERITINIB
     Indication: ACUTE MYELOID LEUKAEMIA
     Route: 048
     Dates: start: 20161221, end: 20170103

REACTIONS (4)
  - Bronchitis [Recovered/Resolved]
  - Arthritis [Not Recovered/Not Resolved]
  - Febrile neutropenia [Recovered/Resolved]
  - Crystal arthropathy [Not Recovered/Not Resolved]

NARRATIVE: CASE EVENT DATE: 20170102
